FAERS Safety Report 19179428 (Version 1)
Quarter: 2021Q2

REPORT INFORMATION
  Report Type: Spontaneous
  Country: AU (occurrence: AU)
  Receive Date: 20210423
  Receipt Date: 20210423
  Transmission Date: 20210717
  Serious: Yes (Disabling)
  Sender: FDA-Public Use
  Company Number: None

PATIENT
  Age: 74 Year
  Sex: Female
  Weight: 50 kg

DRUGS (1)
  1. PROLIA [Suspect]
     Active Substance: DENOSUMAB
     Route: 008
     Dates: end: 20190102

REACTIONS (12)
  - Erythema [None]
  - Asthenia [None]
  - Tooth disorder [None]
  - Back pain [None]
  - Bone pain [None]
  - Influenza like illness [None]
  - Loss of personal independence in daily activities [None]
  - Chills [None]
  - Insomnia [None]
  - Dizziness [None]
  - Arthralgia [None]
  - Blood cholesterol increased [None]

NARRATIVE: CASE EVENT DATE: 20190101
